FAERS Safety Report 16841024 (Version 1)
Quarter: 2019Q3

REPORT INFORMATION
  Report Type: Spontaneous
  Country: US (occurrence: US)
  Receive Date: 20190731
  Receipt Date: 20190731
  Transmission Date: 20191005
  Serious: Yes (Hospitalization, Disabling)
  Sender: FDA-Public Use
  Company Number: None

PATIENT
  Age: 53 Year
  Sex: Female
  Weight: 83.91 kg

DRUGS (1)
  1. CIPROFLOXACIN. [Suspect]
     Active Substance: CIPROFLOXACIN
     Indication: BACTERIAL INFECTION
     Dosage: ?          QUANTITY:20 TABLETS;?
     Route: 048
     Dates: start: 20190621, end: 20190701

REACTIONS (5)
  - Fatigue [None]
  - Abdominal pain [None]
  - Tendon rupture [None]
  - Musculoskeletal stiffness [None]
  - Memory impairment [None]

NARRATIVE: CASE EVENT DATE: 20190629
